FAERS Safety Report 4794446-X (Version None)
Quarter: 2005Q4

REPORT INFORMATION
  Report Type: 
  Country: None (occurrence: None)
  Receive Date: 20051011
  Receipt Date: 20050511
  Transmission Date: 20060501
  Serious: Yes (Other)
  Sender: FDA-Public Use
  Company Number: TH-BRISTOL-MYERS SQUIBB COMPANY-12974614

PATIENT
  Age: 37 Year
  Sex: Male

DRUGS (7)
  1. EFAVIRENZ [Suspect]
     Indication: HIV INFECTION
     Route: 048
     Dates: start: 20050314, end: 20050509
  2. SULFAMETHOXAZOLE + TRIMETHOPRIM [Suspect]
     Route: 048
     Dates: start: 20050120, end: 20050509
  3. FLUCONAZOLE [Suspect]
     Route: 048
     Dates: start: 20050120, end: 20050509
  4. LAMIVUDINE [Concomitant]
     Dates: start: 20050314
  5. ZIDOVUDINE [Concomitant]
     Dates: start: 20050314
  6. LOPERAMIDE HCL [Concomitant]
     Dates: start: 20050507, end: 20050508
  7. NORFLOXACIN [Concomitant]
     Dates: start: 20050507, end: 20050508

REACTIONS (11)
  - ABDOMINAL PAIN UPPER [None]
  - ALANINE AMINOTRANSFERASE INCREASED [None]
  - ASPARTATE AMINOTRANSFERASE INCREASED [None]
  - BLOOD BILIRUBIN INCREASED [None]
  - CHROMATURIA [None]
  - DIARRHOEA [None]
  - FATIGUE [None]
  - HEPATITIS B [None]
  - HEPATOMEGALY [None]
  - JAUNDICE [None]
  - PYREXIA [None]
